FAERS Safety Report 13624960 (Version 2)
Quarter: 2017Q3

REPORT INFORMATION
  Report Type: Spontaneous
  Country: US (occurrence: US)
  Receive Date: 20170607
  Receipt Date: 20170920
  Transmission Date: 20171127
  Serious: Yes (Other)
  Sender: FDA-Public Use
  Company Number: US-JNJFOC-20170523729

PATIENT
  Sex: Male

DRUGS (7)
  1. RISPERDAL [Suspect]
     Active Substance: RISPERIDONE
     Indication: ANXIETY
     Route: 048
     Dates: end: 2013
  2. RISPERIDONE. [Suspect]
     Active Substance: RISPERIDONE
     Indication: PRODUCT USED FOR UNKNOWN INDICATION
     Route: 048
     Dates: start: 2008, end: 2012
  3. RISPERDAL [Suspect]
     Active Substance: RISPERIDONE
     Indication: BIPOLAR DISORDER
     Dosage: 0.5 MG/1 MG
     Route: 048
     Dates: start: 20060221, end: 20130808
  4. TOPAMAX [Concomitant]
     Active Substance: TOPIRAMATE
     Indication: WEIGHT CONTROL
     Route: 065
     Dates: start: 2010, end: 2015
  5. RISPERDAL [Suspect]
     Active Substance: RISPERIDONE
     Indication: ANXIETY
     Dosage: 0.5 MG/1 MG
     Route: 048
     Dates: start: 20060221, end: 20130808
  6. RISPERIDONE. [Suspect]
     Active Substance: RISPERIDONE
     Indication: PRODUCT USED FOR UNKNOWN INDICATION
     Route: 048
  7. RISPERDAL [Suspect]
     Active Substance: RISPERIDONE
     Indication: BIPOLAR DISORDER
     Route: 048
     Dates: end: 2013

REACTIONS (4)
  - Weight increased [Unknown]
  - Emotional disorder [Unknown]
  - Gynaecomastia [Unknown]
  - Blood prolactin increased [Unknown]

NARRATIVE: CASE EVENT DATE: 2007
